FAERS Safety Report 9108947 (Version 1)
Quarter: 2013Q1

REPORT INFORMATION
  Report Type: Spontaneous
  Country: US (occurrence: US)
  Receive Date: 20130222
  Receipt Date: 20130222
  Transmission Date: 20140127
  Serious: No
  Sender: FDA-Public Use
  Company Number: US-009507513-1302USA010103

PATIENT
  Sex: Male

DRUGS (1)
  1. CORICIDIN HBP FLU [Suspect]
     Indication: COUGH
     Dosage: UNK, UNKNOWN
     Route: 048
     Dates: start: 20121120

REACTIONS (1)
  - Drug ineffective [Unknown]
